FAERS Safety Report 22227703 (Version 2)
Quarter: 2023Q2

REPORT INFORMATION
  Report Type: Spontaneous
  Country: GB (occurrence: GB)
  Receive Date: 20230419
  Receipt Date: 20230426
  Transmission Date: 20230722
  Serious: Yes (Other)
  Sender: FDA-Public Use
  Company Number: GB-002147023-NVSC2023GB072326

PATIENT
  Age: 49 Year
  Sex: Male

DRUGS (2)
  1. EVEROLIMUS [Suspect]
     Active Substance: EVEROLIMUS
     Indication: Pancreatic neuroendocrine tumour
     Dosage: 10 MILLIGRAM DAILY;
     Route: 065
     Dates: start: 20220704, end: 20220829
  2. EVEROLIMUS [Suspect]
     Active Substance: EVEROLIMUS
     Indication: Malignant neoplasm progression

REACTIONS (5)
  - Blood creatine decreased [Unknown]
  - Blood creatinine abnormal [Unknown]
  - Renal impairment [Unknown]
  - Diarrhoea [Recovering/Resolving]
  - Nephropathy toxic [Not Recovered/Not Resolved]

NARRATIVE: CASE EVENT DATE: 20220704
